FAERS Safety Report 7825260-6 (Version None)
Quarter: 2011Q4

REPORT INFORMATION
  Report Type: 
  Country: None (occurrence: None)
  Receive Date: 20111019
  Receipt Date: 20111013
  Transmission Date: 20120403
  Serious: Yes (Life-Threatening, Hospitalization, Other)
  Sender: FDA-Public Use
  Company Number: US-GLAXOSMITHKLINE-A0944625A

PATIENT
  Age: 65 Year
  Sex: Male
  Weight: 130.9 kg

DRUGS (6)
  1. POTASSIUM CHLORIDE [Concomitant]
     Dosage: 20MEQ PER DAY
     Route: 048
  2. ALDACTONE [Concomitant]
     Dosage: 25MG PER DAY
     Route: 048
  3. ARIXTRA [Suspect]
     Indication: ATRIAL FIBRILLATION
     Dosage: 7.5MG PER DAY
     Route: 058
     Dates: start: 20110912, end: 20110913
  4. LISINOPRIL [Concomitant]
     Dosage: 2.5MG PER DAY
     Route: 048
  5. COREG [Concomitant]
     Dosage: 50MG PER DAY
     Route: 048
  6. LASIX [Concomitant]
     Dosage: 160MG PER DAY
     Route: 048

REACTIONS (5)
  - BLOOD CALCIUM DECREASED [None]
  - UNDERDOSE [None]
  - RENAL FAILURE [None]
  - HAEMORRHAGE [None]
  - DRUG ADMINISTRATION ERROR [None]
